FAERS Safety Report 10100544 (Version 3)
Quarter: 2014Q2

REPORT INFORMATION
  Report Type: Spontaneous
  Country: JP (occurrence: JP)
  Receive Date: 20140423
  Receipt Date: 20140522
  Transmission Date: 20141212
  Serious: Yes (Death)
  Sender: FDA-Public Use
  Company Number: PHHY2014JP044478

PATIENT
  Age: 98 Year
  Sex: Female

DRUGS (7)
  1. EXELON PATCH [Suspect]
     Indication: DEMENTIA ALZHEIMER^S TYPE
     Dosage: 4.5 MG, DAILY
     Route: 062
     Dates: start: 20140331, end: 20140409
  2. NU-LOTAN [Concomitant]
     Dosage: UNK UKN, UNK
     Route: 048
  3. NORVASC [Concomitant]
     Dosage: UNK UKN, UNK
     Route: 048
  4. YOKUKANSAN [Concomitant]
     Dosage: UNK UKN, UNK
     Route: 048
  5. MAGMITT [Concomitant]
     Dosage: UNK UKN, UNK
     Route: 048
  6. GRAMALIL [Concomitant]
     Dosage: UNK UKN, UNK
     Route: 048
  7. LUPRAC [Concomitant]
     Dosage: UNK UKN, UNK
     Route: 048

REACTIONS (2)
  - Colon cancer [Fatal]
  - Anger [Unknown]
